FAERS Safety Report 7356381-2 (Version None)
Quarter: 2011Q1

REPORT INFORMATION
  Report Type: 
  Country: None (occurrence: None)
  Receive Date: 20110316
  Receipt Date: 20110309
  Transmission Date: 20110831
  Serious: Yes (Hospitalization)
  Sender: FDA-Public Use
  Company Number: US-ELI_LILLY_AND_COMPANY-US201103003394

PATIENT
  Age: 63 Year
  Sex: Male

DRUGS (1)
  1. HUMATROPE [Suspect]
     Indication: HORMONE THERAPY
     Dosage: 6 MG, UNK
     Dates: start: 20050101

REACTIONS (2)
  - HIP FRACTURE [None]
  - PNEUMONIA [None]
